APPROVED DRUG PRODUCT: TIMOLOL MALEATE
Active Ingredient: TIMOLOL MALEATE
Strength: 10MG
Dosage Form/Route: TABLET;ORAL
Application: A072668 | Product #003 | TE Code: AB
Applicant: MYLAN PHARMACEUTICALS INC
Approved: Jun 8, 1990 | RLD: No | RS: No | Type: RX